FAERS Safety Report 15361587 (Version 1)
Quarter: 2018Q3

REPORT INFORMATION
  Report Type: Spontaneous
  Country: US (occurrence: US)
  Receive Date: 20180831
  Receipt Date: 20180831
  Transmission Date: 20181010
  Serious: No
  Sender: FDA-Public Use
  Company Number: None

PATIENT
  Age: 41 Year
  Sex: Female
  Weight: 64.35 kg

DRUGS (4)
  1. CANDESARTAN. [Concomitant]
     Active Substance: CANDESARTAN
  2. ESOMEPRAZOLE [Concomitant]
     Active Substance: ESOMEPRAZOLE
  3. AIMOVIG [Suspect]
     Active Substance: ERENUMAB-AOOE
     Indication: MIGRAINE
     Dosage: ?          OTHER FREQUENCY:1 DOSE;?
     Route: 030
  4. VITAMIN D3 [Concomitant]
     Active Substance: CHOLECALCIFEROL

REACTIONS (13)
  - Influenza [None]
  - Sleep apnoea syndrome [None]
  - Headache [None]
  - Paraesthesia [None]
  - Oropharyngeal pain [None]
  - Dyspnoea [None]
  - Asthma [None]
  - Neck pain [None]
  - Arthralgia [None]
  - Pyrexia [None]
  - Muscle spasms [None]
  - Upper-airway cough syndrome [None]
  - Bone pain [None]

NARRATIVE: CASE EVENT DATE: 20180731
